FAERS Safety Report 8162033-1 (Version None)
Quarter: 2012Q1

REPORT INFORMATION
  Report Type: 
  Country: None (occurrence: None)
  Receive Date: 20120224
  Receipt Date: 20110830
  Transmission Date: 20120608
  Serious: No
  Sender: FDA-Public Use
  Company Number: US-BRISTOL-MYERS SQUIBB COMPANY-15755192

PATIENT
  Age: 81 Year
  Sex: Male

DRUGS (1)
  1. METFORMIN HCL [Suspect]
     Indication: TYPE 2 DIABETES MELLITUS

REACTIONS (4)
  - SENSATION OF HEAVINESS [None]
  - NAUSEA [None]
  - PAIN IN EXTREMITY [None]
  - OEDEMA PERIPHERAL [None]
